FAERS Safety Report 19144434 (Version 1)
Quarter: 2021Q2

REPORT INFORMATION
  Report Type: Report from Study
  Country: None (occurrence: US)
  Receive Date: 20210416
  Receipt Date: 20210416
  Transmission Date: 20210717
  Serious: Yes (Other)
  Sender: FDA-Public Use
  Company Number: US-ABBVIE-21K-163-3854925-00

PATIENT
  Sex: Female

DRUGS (2)
  1. HUMIRA [Suspect]
     Active Substance: ADALIMUMAB
     Indication: PRODUCT USED FOR UNKNOWN INDICATION
     Route: 058
  2. COVID?19 VACCINE NOS. [Suspect]
     Active Substance: COVID-19 VACCINE NOS
     Indication: COVID-19 IMMUNISATION
     Route: 030

REACTIONS (6)
  - Eye discharge [Not Recovered/Not Resolved]
  - Injection site vesicles [Recovered/Resolved]
  - Injection site bruising [Recovering/Resolving]
  - Headache [Unknown]
  - Dry mouth [Not Recovered/Not Resolved]
  - Pain in extremity [Unknown]
